FAERS Safety Report 8347583-7 (Version None)
Quarter: 2012Q2

REPORT INFORMATION
  Report Type: 
  Country: None (occurrence: None)
  Receive Date: 20120509
  Receipt Date: 20120428
  Transmission Date: 20120825
  Serious: Yes (Hospitalization)
  Sender: FDA-Public Use
  Company Number: US-BRISTOL-MYERS SQUIBB COMPANY-16506909

PATIENT
  Age: 57 Year
  Sex: Female
  Weight: 85 kg

DRUGS (1)
  1. IPILIMUMAB [Suspect]
     Indication: MALIGNANT MELANOMA
     Dosage: NUMBER OF COURSES:3.LAST DOSE ON 16MAR12.
     Route: 042
     Dates: start: 20120203, end: 20120411

REACTIONS (2)
  - COLITIS [None]
  - FEMALE GENITAL TRACT FISTULA [None]
